FAERS Safety Report 9466151 (Version 2)
Quarter: 2014Q1

REPORT INFORMATION
  Report Type: Spontaneous
  Country: US (occurrence: US)
  Receive Date: 20130820
  Receipt Date: 20140128
  Transmission Date: 20141002
  Serious: Yes (Death, Hospitalization)
  Sender: FDA-Public Use
  Company Number: US-B.I. PHARMACEUTICALS,INC./RIDGEFIELD-2013-BI-25629BP

PATIENT
  Sex: Male
  Weight: 100.7 kg

DRUGS (21)
  1. PRADAXA [Suspect]
     Indication: ANTICOAGULANT THERAPY
     Dosage: 300 MG
     Dates: start: 20110606, end: 20120423
  2. PRADAXA [Suspect]
     Indication: ATRIAL FIBRILLATION
  3. CRESTOR [Concomitant]
  4. B12 [Concomitant]
     Route: 030
  5. MEXILETINE [Concomitant]
     Dosage: 750 MG
  6. FUROSEMIDE [Concomitant]
     Dosage: 80 MG
  7. KLOR-CON [Concomitant]
     Dosage: 80 MEQ
  8. LOSARTAN [Concomitant]
     Dosage: 12.5 MG
  9. AMIODARONE [Concomitant]
     Dosage: 200 MG
  10. ADVAIR DISKUS [Concomitant]
  11. ALBUTEROL [Concomitant]
  12. ASPIRIN [Concomitant]
     Dosage: 325 MG
  13. METOPROLOL TARTRATE [Concomitant]
     Dosage: 25 MG
  14. OMEGA 3 [Concomitant]
     Dosage: 1000 MG
  15. PAROXETINE [Concomitant]
     Dosage: 20 MG
  16. PREVACID [Concomitant]
     Dosage: 30 MG
  17. SPIRIVA [Concomitant]
     Route: 055
  18. SYNTHROID [Concomitant]
     Dosage: 137 MCG
  19. VITAMIN C [Concomitant]
     Dosage: 500 MG
  20. VITAMIN D [Concomitant]
  21. XANAX [Concomitant]
     Dosage: 0.25 MG

REACTIONS (3)
  - Cerebral haemorrhage [Fatal]
  - Gastrointestinal haemorrhage [Fatal]
  - Ischaemic stroke [Fatal]
